FAERS Safety Report 14378202 (Version 2)
Quarter: 2018Q1

REPORT INFORMATION
  Report Type: Report from Study
  Country: US (occurrence: US)
  Receive Date: 20180111
  Receipt Date: 20180129
  Transmission Date: 20180509
  Serious: Yes (Death, Other)
  Sender: FDA-Public Use
  Company Number: US-EXELIXIS-CABO-18011923

PATIENT
  Age: 54 Year
  Sex: Male

DRUGS (26)
  1. AMITIZA [Concomitant]
     Active Substance: LUBIPROSTONE
  2. HYDROXYZINE [Concomitant]
     Active Substance: HYDROXYZINE HYDROCHLORIDE
  3. LAMOTRIGINE. [Concomitant]
     Active Substance: LAMOTRIGINE
  4. XYLOXYLIN ELIXIR [Concomitant]
  5. COMPAZINE [Concomitant]
     Active Substance: PROCHLORPERAZINE MALEATE
     Indication: NAUSEA
  6. DURAGESIC [Concomitant]
     Active Substance: FENTANYL
  7. INLYTA [Concomitant]
     Active Substance: AXITINIB
     Indication: RENAL CANCER
  8. MOVANTIK [Concomitant]
     Active Substance: NALOXEGOL OXALATE
  9. CABOMETYX [Suspect]
     Active Substance: CABOZANTINIB S-MALATE
     Indication: RENAL CANCER
     Dosage: 40 MG, QD
     Route: 048
     Dates: start: 20170601
  10. FLONASE [Concomitant]
     Active Substance: FLUTICASONE PROPIONATE
  11. ONDANSETRON [Concomitant]
     Active Substance: ONDANSETRON
     Indication: VOMITING
  12. PERCOCET [Concomitant]
     Active Substance: ACETAMINOPHEN\OXYCODONE HYDROCHLORIDE
  13. ZOMETA [Suspect]
     Active Substance: ZOLEDRONIC ACID
     Indication: RENAL CANCER
  14. COMPAZINE [Concomitant]
     Active Substance: PROCHLORPERAZINE MALEATE
     Indication: VOMITING
  15. ESCITALOPRAM [Concomitant]
     Active Substance: ESCITALOPRAM OXALATE
  16. LACTULOSE. [Concomitant]
     Active Substance: LACTULOSE
  17. NORVASC [Concomitant]
     Active Substance: AMLODIPINE BESYLATE
  18. TAMSULOSIN [Concomitant]
     Active Substance: TAMSULOSIN
  19. GABAPENTIN. [Concomitant]
     Active Substance: GABAPENTIN
  20. LORAZEPAM. [Concomitant]
     Active Substance: LORAZEPAM
  21. ONDANSETRON [Concomitant]
     Active Substance: ONDANSETRON
     Indication: NAUSEA
  22. LEVOTHYROXINE. [Concomitant]
     Active Substance: LEVOTHYROXINE
  23. OMEPRAZOLE. [Concomitant]
     Active Substance: OMEPRAZOLE
  24. PERIDEX [Concomitant]
     Active Substance: CHLORHEXIDINE GLUCONATE
  25. DEXAMETHASONE. [Concomitant]
     Active Substance: DEXAMETHASONE
  26. NORTRIPTYLINE [Concomitant]
     Active Substance: NORTRIPTYLINE

REACTIONS (7)
  - Skin disorder [Unknown]
  - Fatigue [Unknown]
  - Hemiplegia [Unknown]
  - Feeding disorder [Unknown]
  - Malignant neoplasm progression [Fatal]
  - Osteonecrosis [Unknown]
  - Asthenia [Unknown]

NARRATIVE: CASE EVENT DATE: 20170908
